FAERS Safety Report 14774355 (Version 3)
Quarter: 2018Q2

REPORT INFORMATION
  Report Type: Other
  Country: JP (occurrence: JP)
  Receive Date: 20180418
  Receipt Date: 20180628
  Transmission Date: 20180711
  Serious: Yes (Life-Threatening, Hospitalization, Other)
  Sender: FDA-Public Use
  Company Number: JP-PURDUE PHARMA-GBR-2018-0054835

PATIENT
  Age: 70 Year
  Sex: Female

DRUGS (3)
  1. AMINOPHYLLINE HYDRATE [Suspect]
     Active Substance: AMINOPHYLLINE
     Indication: ASTHMA
     Dosage: 250 MG, DAILY
     Route: 042
     Dates: start: 20170123, end: 20170123
  2. UNIPHYL [Suspect]
     Active Substance: THEOPHYLLINE ANHYDROUS
     Indication: ASTHMA
     Dosage: 600 MG, DAILY
     Route: 048
     Dates: end: 20170124
  3. AMINOPHYLLINE HYDRATE [Suspect]
     Active Substance: AMINOPHYLLINE
     Dosage: 250 MG, DAILY
     Route: 042
     Dates: start: 20170119, end: 20170119

REACTIONS (3)
  - Toxicity to various agents [Unknown]
  - Seizure [Recovered/Resolved with Sequelae]
  - Stress cardiomyopathy [Recovered/Resolved with Sequelae]

NARRATIVE: CASE EVENT DATE: 20170124
